FAERS Safety Report 12805465 (Version 1)
Quarter: 2016Q4

REPORT INFORMATION
  Report Type: Spontaneous
  Country: US (occurrence: US)
  Receive Date: 20161003
  Receipt Date: 20161003
  Transmission Date: 20170207
  Serious: Yes (Other)
  Sender: FDA-Public Use
  Company Number: None

PATIENT
  Age: 35 Year
  Sex: Female
  Weight: 66.74 kg

DRUGS (1)
  1. DULOXETINE HCL 20MG [Suspect]
     Active Substance: DULOXETINE HYDROCHLORIDE
     Indication: DEPRESSION
     Route: 048
     Dates: start: 20150321, end: 20150415

REACTIONS (3)
  - Product substitution issue [None]
  - Tremor [None]
  - Fatigue [None]

NARRATIVE: CASE EVENT DATE: 20150415
